FAERS Safety Report 7346201-4 (Version None)
Quarter: 2011Q1

REPORT INFORMATION
  Report Type: 
  Country: None (occurrence: None)
  Receive Date: 20110311
  Receipt Date: 20110302
  Transmission Date: 20110831
  Serious: Yes (Other)
  Sender: FDA-Public Use
  Company Number: US-ELI_LILLY_AND_COMPANY-US201103001623

PATIENT
  Sex: Female

DRUGS (2)
  1. OXYGEN [Concomitant]
  2. FORTEO [Suspect]
     Indication: OSTEOPOROSIS
     Dosage: 20 UG, DAILY (1/D)

REACTIONS (3)
  - MOTOR DYSFUNCTION [None]
  - SPEECH DISORDER [None]
  - CEREBROVASCULAR ACCIDENT [None]
